FAERS Safety Report 6284321-6 (Version None)
Quarter: 2009Q3

REPORT INFORMATION
  Report Type: 
  Country: None (occurrence: None)
  Receive Date: 20090727
  Receipt Date: 20090716
  Transmission Date: 20100115
  Serious: Yes (Other)
  Sender: FDA-Public Use
  Company Number: US-AMGEN-QUU356217

PATIENT
  Sex: Male
  Weight: 108.1 kg

DRUGS (7)
  1. ENBREL [Suspect]
     Indication: PSORIATIC ARTHROPATHY
     Dates: start: 20060301
  2. CELEBREX [Concomitant]
  3. VYTORIN [Concomitant]
  4. DEMADEX [Concomitant]
  5. CARDIZEM [Concomitant]
  6. DIOVAN [Concomitant]
  7. COREG [Concomitant]

REACTIONS (16)
  - ARTHRITIS [None]
  - CARDIAC DISORDER [None]
  - CELLULITIS [None]
  - CHEST PAIN [None]
  - CLOSTRIDIUM DIFFICILE COLITIS [None]
  - DIABETES MELLITUS [None]
  - GENITAL CANDIDIASIS [None]
  - HEART VALVE INCOMPETENCE [None]
  - HEPATIC CIRRHOSIS [None]
  - HEPATIC STEATOSIS [None]
  - NECK INJURY [None]
  - OSTEOARTHRITIS [None]
  - PLEURAL EFFUSION [None]
  - PLEURITIC PAIN [None]
  - PRURITUS GENITAL [None]
  - PSORIASIS [None]
